FAERS Safety Report 22585718 (Version 1)
Quarter: 2023Q2

REPORT INFORMATION
  Report Type: Spontaneous
  Country: NL (occurrence: NL)
  Receive Date: 20230610
  Receipt Date: 20230610
  Transmission Date: 20230722
  Serious: Yes (Other)
  Sender: FDA-Public Use
  Company Number: NL-BAUSCH-BL-2023-008932

PATIENT

DRUGS (1)
  1. BUDESONIDE [Suspect]
     Active Substance: BUDESONIDE
     Indication: Immune-mediated enterocolitis
     Route: 048
     Dates: start: 202303

REACTIONS (2)
  - Cushing^s syndrome [Unknown]
  - Product use in unapproved indication [Unknown]
